FAERS Safety Report 12549716 (Version 1)
Quarter: 2016Q3

REPORT INFORMATION
  Report Type: Spontaneous
  Country: CN (occurrence: CN)
  Receive Date: 20160712
  Receipt Date: 20160712
  Transmission Date: 20161109
  Serious: Yes (Life-Threatening, Other)
  Sender: FDA-Public Use
  Company Number: CN-PFIZER INC-2016336447

PATIENT
  Age: 67 Year
  Sex: Female
  Weight: 43 kg

DRUGS (3)
  1. AMPHOTERICIN B, LIPOSOME [Concomitant]
     Active Substance: AMPHOTERICIN B
     Indication: MENINGITIS CRYPTOCOCCAL
     Dosage: 50 MG, 1X/DAY
     Route: 041
     Dates: start: 20160221, end: 20160224
  2. DIFLUCAN [Suspect]
     Active Substance: FLUCONAZOLE
     Dosage: 0.4 G, 2X/DAY
     Route: 041
     Dates: start: 20160222, end: 20160223
  3. DIFLUCAN [Suspect]
     Active Substance: FLUCONAZOLE
     Indication: MENINGITIS CRYPTOCOCCAL
     Dosage: 0.2 G, 2X/DAY
     Route: 041
     Dates: start: 20160216, end: 20160222

REACTIONS (3)
  - Nodal arrhythmia [Recovering/Resolving]
  - Cardiac arrest [Recovering/Resolving]
  - Electrocardiogram QT prolonged [Recovering/Resolving]

NARRATIVE: CASE EVENT DATE: 20160223
